FAERS Safety Report 24116443 (Version 1)
Quarter: 2024Q3

REPORT INFORMATION
  Report Type: Spontaneous
  Country: US (occurrence: US)
  Receive Date: 20240722
  Receipt Date: 20240722
  Transmission Date: 20241016
  Serious: No
  Sender: ASTELLAS
  Company Number: US-ASTELLAS-2024US002925

PATIENT
  Age: 83 Year
  Sex: Male

DRUGS (1)
  1. MYRBETRIQ [Suspect]
     Active Substance: MIRABEGRON
     Indication: Incontinence
     Route: 065

REACTIONS (4)
  - Dry skin [Unknown]
  - Dry mouth [Not Recovered/Not Resolved]
  - Pruritus [Unknown]
  - Constipation [Unknown]
